FAERS Safety Report 9617186 (Version 1)
Quarter: 2013Q4

REPORT INFORMATION
  Report Type: Report from Study
  Country: BR (occurrence: BR)
  Receive Date: 20131011
  Receipt Date: 20131011
  Transmission Date: 20140711
  Serious: Yes (Death, Hospitalization)
  Sender: FDA-Public Use
  Company Number: ALCN2013BR005085

PATIENT
  Sex: 0

DRUGS (3)
  1. DUOTRAV [BAC] [Suspect]
     Indication: GLAUCOMA
     Dosage: 1 GTT, QD
     Route: 047
     Dates: start: 201212
  2. AZOPT [Suspect]
     Indication: GLAUCOMA
     Dosage: 1 GTT BID
     Route: 047
     Dates: start: 201303
  3. ANTIHYPERTENSIVES [Concomitant]
     Indication: HYPERTENSION
     Dosage: 1 DF, UNK
     Route: 048

REACTIONS (1)
  - Pharyngeal neoplasm [Fatal]
